FAERS Safety Report 5762668-7 (Version None)
Quarter: 2008Q2

REPORT INFORMATION
  Report Type: 
  Country: None (occurrence: None)
  Receive Date: 20080609
  Receipt Date: 20080528
  Transmission Date: 20081010
  Serious: Yes (Hospitalization)
  Sender: FDA-Public Use
  Company Number: CA-JNJFOC-20080204850

PATIENT
  Sex: Male
  Weight: 56.8 kg

DRUGS (8)
  1. REMICADE [Suspect]
     Route: 042
  2. REMICADE [Suspect]
     Route: 042
  3. REMICADE [Suspect]
     Indication: CROHN'S DISEASE
     Route: 042
  4. MERCAPTOPURINE [Concomitant]
     Route: 048
  5. PANTOPRAZOLE SODIUM [Concomitant]
  6. PENTOXIFYLLINE [Concomitant]
  7. HYDROMORPHINE [Concomitant]
  8. FENTANYL [Concomitant]

REACTIONS (1)
  - INTESTINAL STENOSIS [None]
